FAERS Safety Report 9067438 (Version 3)
Quarter: 2013Q1

REPORT INFORMATION
  Report Type: Report from Study
  Country: US (occurrence: US)
  Receive Date: 20130214
  Receipt Date: 20130308
  Transmission Date: 20140127
  Serious: Yes (Hospitalization)
  Sender: FDA-Public Use
  Company Number: US-BRISTOL-MYERS SQUIBB COMPANY-17369588

PATIENT
  Age: 65 Year
  Sex: Male

DRUGS (17)
  1. INTERLEUKIN-21 [Suspect]
     Indication: MALIGNANT MELANOMA
     Dosage: LAST DOSE ON 15JUN2012?NO OF COURSE:5
     Route: 042
     Dates: start: 20120326
  2. IPILIMUMAB [Suspect]
     Indication: MALIGNANT MELANOMA
     Dosage: LAST DOSE ON 18JUN2012?NO OF COURSE:4
     Route: 042
     Dates: start: 20120416
  3. ASPIRIN [Concomitant]
  4. CO-QUINOL [Concomitant]
  5. HYDROCORTISONE [Concomitant]
  6. LEVOTHYROXINE [Concomitant]
  7. MULTIVITAMIN [Concomitant]
  8. PRILOSEC [Concomitant]
  9. TRAZODONE HCL TABS [Concomitant]
     Dosage: 1 TO 0.5 TABLETS AT BEDTIME
  10. VITAMIN B COMPLEX [Concomitant]
  11. VITAMIN C [Concomitant]
  12. VITAMIN D3 [Concomitant]
  13. ACYCLOVIR [Concomitant]
  14. DOCUSATE SODIUM [Concomitant]
  15. VICODIN [Concomitant]
     Indication: PAIN
     Dosage: 7.5/325 MG 1 TO 2 CAPSULES AS NEEDED
  16. SENNA [Concomitant]
  17. VIAGRA [Concomitant]

REACTIONS (2)
  - Confusional state [Recovered/Resolved]
  - Pyrexia [Recovered/Resolved]
